FAERS Safety Report 23636703 (Version 1)
Quarter: 2024Q1

REPORT INFORMATION
  Report Type: Spontaneous
  Country: US (occurrence: None)
  Receive Date: 20240315
  Receipt Date: 20240315
  Transmission Date: 20240410
  Serious: No
  Sender: FDA-Public Use
  Company Number: None

PATIENT
  Age: 16 Year
  Sex: Male
  Weight: 77.11 kg

DRUGS (1)
  1. CANNABIS SATIVA SEED OIL\HERBALS [Suspect]
     Active Substance: CANNABIS SATIVA SEED OIL\HERBALS

REACTIONS (4)
  - Loss of consciousness [None]
  - Vomiting [None]
  - Seizure [None]
  - Head injury [None]

NARRATIVE: CASE EVENT DATE: 20240226
